FAERS Safety Report 7590856-6 (Version None)
Quarter: 2011Q3

REPORT INFORMATION
  Report Type: 
  Country: None (occurrence: None)
  Receive Date: 20110705
  Receipt Date: 20110629
  Transmission Date: 20111222
  Serious: Yes (Other)
  Sender: FDA-Public Use
  Company Number: JP-B.I. PHARMACEUTICALS,INC./RIDGEFIELD-2011-BP-16625NB

PATIENT
  Age: 80 Year
  Sex: Male

DRUGS (5)
  1. MICARDIS [Suspect]
     Indication: HYPERTENSION
     Dosage: 20 MG
     Route: 048
  2. MUCOSTA [Concomitant]
     Route: 065
  3. LIVALO [Suspect]
     Indication: HYPERLIPIDAEMIA
     Route: 065
  4. LENDORMIN [Concomitant]
     Route: 065
  5. DEPAS [Suspect]
     Route: 065

REACTIONS (1)
  - INTERSTITIAL LUNG DISEASE [None]
